FAERS Safety Report 23561061 (Version 2)
Quarter: 2024Q1

REPORT INFORMATION
  Report Type: Spontaneous
  Country: US (occurrence: US)
  Receive Date: 20240224
  Receipt Date: 20240304
  Transmission Date: 20240410
  Serious: No
  Sender: FDA-Public Use
  Company Number: US-JNJFOC-20240218882

PATIENT
  Age: 75 Year
  Sex: Female

DRUGS (2)
  1. MENS ROGAINE EXTRA STRENGTH [Suspect]
     Active Substance: MINOXIDIL
     Indication: Alopecia
     Dosage: ONCE A DAY OFF AND ON THROUGH THE YEARS (ABOUT 3 OR 4 YEARS)
     Route: 061
  2. MENS ROGAINE EXTRA STRENGTH [Suspect]
     Active Substance: MINOXIDIL
     Dosage: 3 TO 4 YEARS AGO
     Route: 061

REACTIONS (2)
  - Hair growth abnormal [Unknown]
  - Off label use [Unknown]
